FAERS Safety Report 8776868 (Version 4)
Quarter: 2012Q4

REPORT INFORMATION
  Report Type: 
  Country: US (occurrence: US)
  Receive Date: 20120911
  Receipt Date: 20121211
  Transmission Date: 20130627
  Serious: Yes (Disabling, Other)
  Sender: FDA-Public Use
  Company Number: US-JNJFOC-20120900570

PATIENT
  Age: 46 None
  Sex: Female

DRUGS (2)
  1. INVEGA SUSTENNA [Suspect]
     Indication: PSYCHOTIC DISORDER
     Route: 030
     Dates: start: 20120711, end: 20120711
  2. INVEGA SUSTENNA [Suspect]
     Indication: PSYCHOTIC DISORDER
     Route: 030
     Dates: start: 20120705, end: 20120705

REACTIONS (15)
  - Tardive dyskinesia [Recovering/Resolving]
  - Akathisia [Unknown]
  - Restless legs syndrome [Not Recovered/Not Resolved]
  - Emotional disorder [Not Recovered/Not Resolved]
  - Vision blurred [Unknown]
  - Agitation [Not Recovered/Not Resolved]
  - Abnormal behaviour [Not Recovered/Not Resolved]
  - Insomnia [Not Recovered/Not Resolved]
  - Hyperhidrosis [Not Recovered/Not Resolved]
  - Adverse event [Not Recovered/Not Resolved]
  - Refusal of treatment by patient [Recovered/Resolved]
  - Sensory disturbance [Not Recovered/Not Resolved]
  - Incorrect route of drug administration [Unknown]
  - Alopecia [Not Recovered/Not Resolved]
  - Anxiety [Unknown]
